FAERS Safety Report 7176570-X (Version None)
Quarter: 2010Q4

REPORT INFORMATION
  Report Type: 
  Country: None (occurrence: None)
  Receive Date: 20101220
  Receipt Date: 20101214
  Transmission Date: 20110411
  Serious: Yes (Other)
  Sender: FDA-Public Use
  Company Number: GB-PFIZER INC-2010173417

PATIENT
  Sex: Female

DRUGS (2)
  1. CHAMPIX [Suspect]
     Dosage: UNK
  2. CHAMPIX [Suspect]
     Dosage: UNK
     Dates: start: 20101215

REACTIONS (4)
  - INFLUENZA [None]
  - MALAISE [None]
  - NAUSEA [None]
  - PARKINSON'S DISEASE [None]
